FAERS Safety Report 11265295 (Version 3)
Quarter: 2015Q3

REPORT INFORMATION
  Report Type: Report from Study
  Country: US (occurrence: US)
  Receive Date: 20150713
  Receipt Date: 20150807
  Transmission Date: 20151125
  Serious: Yes (Hospitalization)
  Sender: FDA-Public Use
  Company Number: US-BIOGENIDEC-2015BI093720

PATIENT
  Age: 32 Year
  Sex: Female

DRUGS (1)
  1. TYSABRI [Suspect]
     Active Substance: NATALIZUMAB
     Indication: CROHN^S DISEASE
     Route: 042
     Dates: start: 20150224

REACTIONS (3)
  - Infectious mononucleosis [Unknown]
  - Cytomegalovirus infection [Recovered/Resolved]
  - Epstein-Barr virus infection [Recovered/Resolved]

NARRATIVE: CASE EVENT DATE: 2015
